FAERS Safety Report 20669778 (Version 4)
Quarter: 2025Q1

REPORT INFORMATION
  Report Type: Spontaneous
  Country: GB (occurrence: GB)
  Receive Date: 20220404
  Receipt Date: 20250211
  Transmission Date: 20250408
  Serious: Yes (Other)
  Sender: KYOWA
  Company Number: GB-KYOWAKIRIN-2022BKK004208

PATIENT

DRUGS (3)
  1. CRYSVITA [Suspect]
     Active Substance: BUROSUMAB-TWZA
     Indication: Hereditary hypophosphataemic rickets
     Dosage: 80 MG, 1X/4 WEEKS (EVERY 28 DAYS)
     Route: 058
     Dates: start: 20200115
  2. CRYSVITA [Suspect]
     Active Substance: BUROSUMAB-TWZA
     Route: 058
     Dates: start: 20221209
  3. CRYSVITA [Suspect]
     Active Substance: BUROSUMAB-TWZA
     Route: 058
     Dates: start: 20221209

REACTIONS (2)
  - Nephrolithiasis [Recovered/Resolved]
  - Weight decreased [Unknown]

NARRATIVE: CASE EVENT DATE: 20220320
